FAERS Safety Report 7184610-7 (Version None)
Quarter: 2010Q4

REPORT INFORMATION
  Report Type: 
  Country: None (occurrence: None)
  Receive Date: 20101222
  Receipt Date: 20101213
  Transmission Date: 20110411
  Serious: Yes (Hospitalization, Other)
  Sender: FDA-Public Use
  Company Number: DE-ASTRAZENECA-2010SE53399

PATIENT
  Age: 21 Year
  Sex: Male

DRUGS (3)
  1. SEROQUEL [Suspect]
     Route: 048
     Dates: start: 20100101, end: 20100812
  2. SEROQUEL [Suspect]
     Route: 048
     Dates: start: 20100813
  3. ZOPICLONE [Suspect]
     Indication: SLEEP DISORDER
     Route: 048
     Dates: start: 20100811

REACTIONS (9)
  - AGGRESSION [None]
  - AGITATION [None]
  - ANXIETY [None]
  - COMA [None]
  - CONFUSIONAL STATE [None]
  - HALLUCINATION, VISUAL [None]
  - LOGORRHOEA [None]
  - SLEEP DISORDER [None]
  - SUICIDAL IDEATION [None]
